FAERS Safety Report 7177987-X (Version None)
Quarter: 2010Q4

REPORT INFORMATION
  Report Type: 
  Country: None (occurrence: None)
  Receive Date: 20101220
  Receipt Date: 20101207
  Transmission Date: 20110411
  Serious: Yes (Death)
  Sender: FDA-Public Use
  Company Number: IL-ACTELION-A-CH2010-42434

PATIENT
  Age: 6 Month
  Sex: Female

DRUGS (2)
  1. TRACLEER [Suspect]
     Indication: PULMONARY HYPERTENSION
     Dosage: UNK , BID
     Route: 048
     Dates: start: 20101101
  2. SILDENAFIL [Concomitant]
     Dosage: UNK

REACTIONS (2)
  - PULMONARY HYPERTENSION [None]
  - RENAL FAILURE [None]
